FAERS Safety Report 11299248 (Version 1)
Quarter: 2015Q3

REPORT INFORMATION
  Report Type: Spontaneous
  Country: US (occurrence: US)
  Receive Date: 20150722
  Receipt Date: 20150722
  Transmission Date: 20151125
  Serious: No
  Sender: FDA-Public Use
  Company Number: US-ELI_LILLY_AND_COMPANY-US201205004714

PATIENT
  Sex: Female

DRUGS (3)
  1. EVISTA [Suspect]
     Active Substance: RALOXIFENE HYDROCHLORIDE
     Indication: OSTEOPENIA
     Dosage: 60 MG, QD
     Dates: end: 20120511
  2. ATENOLOL. [Concomitant]
     Active Substance: ATENOLOL
     Indication: HEART RATE
     Dosage: UNK, UNKNOWN
     Route: 065
  3. KENALOG [Concomitant]
     Active Substance: TRIAMCINOLONE ACETONIDE
     Dosage: UNK, UNKNOWN
     Route: 065

REACTIONS (16)
  - Corneal oedema [Unknown]
  - Gait disturbance [Unknown]
  - Oedema peripheral [Not Recovered/Not Resolved]
  - Cataract [Unknown]
  - Hot flush [Unknown]
  - Mass [Unknown]
  - Rash macular [Unknown]
  - Alopecia [Unknown]
  - Adverse event [Unknown]
  - Hair disorder [Unknown]
  - Eye disorder [Unknown]
  - Visual impairment [Unknown]
  - Hearing impaired [Unknown]
  - Feeling abnormal [Unknown]
  - Back pain [Unknown]
  - Neck pain [Unknown]

NARRATIVE: CASE EVENT DATE: 2005
